FAERS Safety Report 6179144-2 (Version None)
Quarter: 2009Q2

REPORT INFORMATION
  Report Type: 
  Country: None (occurrence: None)
  Receive Date: 20090505
  Receipt Date: 20090429
  Transmission Date: 20091009
  Serious: Yes (Death)
  Sender: FDA-Public Use
  Company Number: US-ELI_LILLY_AND_COMPANY-US200904007274

PATIENT
  Age: 62 Year
  Sex: Female

DRUGS (4)
  1. GEMCITABINE HCL [Suspect]
     Indication: HODGKIN'S DISEASE
     Dosage: 1000 MG/M2, D1 AND D8, EVERY 21 DAYS
     Route: 042
     Dates: end: 20070101
  2. INVESTIGATIONAL DRUG [Concomitant]
     Indication: HODGKIN'S DISEASE
     Dosage: 12 MG/KG, D1 AND D8, EVERY 21 DAYS
     Route: 042
     Dates: end: 20070101
  3. VINORELBINE [Concomitant]
     Indication: HODGKIN'S DISEASE
     Dosage: 20 MG/M2, D1 AND D8, EVERY 21 DAYS
     Dates: end: 20070101
  4. DOXORUBICIN HCL [Concomitant]
     Indication: HODGKIN'S DISEASE
     Dosage: 15 MG/M2, D1 AND D8, EVERY 21 DAYS
     Dates: end: 20070101

REACTIONS (4)
  - DRUG INTERACTION [None]
  - HYPOXIA [None]
  - LUNG INFILTRATION [None]
  - PNEUMONITIS [None]
